FAERS Safety Report 7570244-9 (Version None)
Quarter: 2011Q2

REPORT INFORMATION
  Report Type: 
  Country: None (occurrence: None)
  Receive Date: 20110622
  Receipt Date: 20110622
  Transmission Date: 20111010
  Serious: No
  Sender: FDA-Public Use
  Company Number: None

PATIENT
  Sex: Female
  Weight: 83.9154 kg

DRUGS (4)
  1. ARTHROTEC [Concomitant]
  2. LOVASTATIN [Suspect]
     Indication: HYPERCHOLESTEROLAEMIA
     Dates: start: 20100101, end: 20110101
  3. IMATRIX [Concomitant]
  4. HYDROCODONE [Concomitant]

REACTIONS (2)
  - DRUG INEFFECTIVE [None]
  - ALOPECIA [None]
